FAERS Safety Report 4506153-9 (Version None)
Quarter: 2005Q1

REPORT INFORMATION
  Report Type: 
  Country: None (occurrence: None)
  Receive Date: 20041025
  Receipt Date: 20040602
  Transmission Date: 20050727
  Serious: Yes (Hospitalization, Other)
  Sender: FDA-Public Use
  Company Number: US-JNJFOC-20040403766

PATIENT
  Age: 69 Year
  Sex: Female
  Weight: 53.978 kg

DRUGS (44)
  1. REMICADE [Suspect]
     Indication: ANKYLOSING SPONDYLITIS
     Dosage: SEE IMAGE
     Route: 042
     Dates: start: 20020822
  2. REMICADE [Suspect]
     Indication: ANKYLOSING SPONDYLITIS
     Dosage: SEE IMAGE
     Route: 042
     Dates: start: 20020905
  3. REMICADE [Suspect]
     Indication: ANKYLOSING SPONDYLITIS
     Dosage: SEE IMAGE
     Route: 042
     Dates: start: 20021008
  4. REMICADE [Suspect]
     Indication: ANKYLOSING SPONDYLITIS
     Dosage: SEE IMAGE
     Route: 042
     Dates: start: 20021126
  5. REMICADE [Suspect]
     Indication: ANKYLOSING SPONDYLITIS
     Dosage: SEE IMAGE
     Route: 042
     Dates: start: 20030115
  6. REMICADE [Suspect]
     Indication: ANKYLOSING SPONDYLITIS
     Dosage: SEE IMAGE
     Route: 042
     Dates: start: 20030317
  7. REMICADE [Suspect]
     Indication: ANKYLOSING SPONDYLITIS
     Dosage: SEE IMAGE
     Route: 042
     Dates: start: 20030520
  8. REMICADE [Suspect]
     Indication: ANKYLOSING SPONDYLITIS
     Dosage: SEE IMAGE
     Route: 042
     Dates: start: 20030711
  9. REMICADE [Suspect]
     Indication: ANKYLOSING SPONDYLITIS
     Dosage: SEE IMAGE
     Route: 042
     Dates: start: 20030909
  10. REMICADE [Suspect]
     Indication: ANKYLOSING SPONDYLITIS
     Dosage: SEE IMAGE
     Route: 042
     Dates: start: 20031216
  11. REMICADE [Suspect]
     Indication: ANKYLOSING SPONDYLITIS
     Dosage: SEE IMAGE
     Route: 042
     Dates: start: 20040201
  12. REMICADE [Suspect]
     Indication: ANKYLOSING SPONDYLITIS
     Dosage: SEE IMAGE
     Route: 042
     Dates: start: 20040406
  13. REMICADE [Suspect]
     Indication: ANKYLOSING SPONDYLITIS
     Dosage: SEE IMAGE
     Route: 042
     Dates: start: 20061101
  14. REMICADE [Suspect]
     Indication: ANKYLOSING SPONDYLITIS
     Dosage: SEE IMAGE
     Route: 042
     Dates: start: 20070201
  15. REMICADE [Suspect]
  16. REMICADE [Suspect]
  17. REMICADE [Suspect]
  18. REMICADE [Suspect]
  19. REMICADE [Suspect]
  20. REMICADE [Suspect]
  21. REMICADE [Suspect]
  22. REMICADE [Suspect]
  23. REMICADE [Suspect]
  24. REMICADE [Suspect]
  25. REMICADE [Suspect]
  26. FOLIC ACID [Concomitant]
  27. EVISTA [Concomitant]
  28. MEGESTROL (MEGESROL) [Concomitant]
  29. CELEXA [Concomitant]
  30. BEXTRA [Concomitant]
  31. TIZANIDINE (TIZANIDINE) [Concomitant]
  32. TEMAZEPAN (TEMAZEPAM) [Concomitant]
  33. DARVOCET-N 100 [Concomitant]
  34. VITAMIN B12 [Concomitant]
  35. PRILOSEC [Concomitant]
  36. METOCLOPRAMIDE [Concomitant]
  37. ADVAIR DISKUS 100/50 [Concomitant]
  38. IRON (IRON) [Concomitant]
  39. VITAMIN D [Concomitant]
  40. CALCIUM (CALCIUM) [Concomitant]
  41. MAGNESIUM (MAGNESIM) [Concomitant]
  42. ZINC (ZINC) [Concomitant]
  43. B 50 (B-50) [Concomitant]
  44. SUPER ANTIOXIDANT (ALL OTHER THERAPEUTIC PRODUCTS) [Concomitant]

REACTIONS (1)
  - PNEUMONIA [None]
